FAERS Safety Report 5154856-8 (Version None)
Quarter: 2006Q4

REPORT INFORMATION
  Report Type: 
  Country: None (occurrence: None)
  Receive Date: 20061121
  Receipt Date: 20061109
  Transmission Date: 20070319
  Serious: Yes (Hospitalization)
  Sender: FDA-Public Use
  Company Number: FR-BRISTOL-MYERS SQUIBB COMPANY-13581509

PATIENT
  Age: 37 Year
  Sex: Male

DRUGS (3)
  1. HOLOXAN [Suspect]
     Indication: GERM CELL CANCER
     Route: 042
     Dates: start: 20060328, end: 20060328
  2. GEMZAR [Suspect]
     Indication: GERM CELL CANCER
     Route: 042
     Dates: start: 20060328, end: 20060328
  3. CISPLATIN [Suspect]
     Indication: GERM CELL CANCER
     Route: 042
     Dates: start: 20060328, end: 20060328

REACTIONS (2)
  - EPISTAXIS [None]
  - PANCYTOPENIA [None]
